FAERS Safety Report 8443017 (Version 8)
Quarter: 2012Q4

REPORT INFORMATION
  Report Type: 
  Country: US (occurrence: US)
  Receive Date: 20120306
  Receipt Date: 20120924
  Transmission Date: 20130627
  Serious: Yes (Other)
  Sender: FDA-Public Use
  Company Number: US-GENZYME-POMP-1002071

PATIENT
  Age: 12 None
  Sex: Male
  Weight: 30 kg

DRUGS (6)
  1. LUMIZYME [Suspect]
     Indication: GLYCOGEN STORAGE DISEASE TYPE II
     Dosage: 600 mg, q2w
     Dates: start: 201206
  2. LUMIZYME [Suspect]
     Dosage: 20 mg/kg, qow
     Route: 042
     Dates: start: 2012
  3. LUMIZYME [Suspect]
     Dosage: 10 mg/kg, q2w
     Dates: start: 201205
  4. LUMIZYME [Suspect]
     Dosage: 600 mg, q2w
     Route: 042
     Dates: start: 20100330, end: 20120202
  5. BENADRYL [Concomitant]
     Indication: PREMEDICATION
  6. MOTRIN [Concomitant]
     Indication: PREMEDICATION

REACTIONS (6)
  - Chronic recurrent multifocal osteomyelitis [Unknown]
  - Red blood cell sedimentation rate increased [Unknown]
  - Skin lesion [Unknown]
  - C-reactive protein increased [Not Recovered/Not Resolved]
  - Anaemia [Unknown]
  - Fall [Unknown]
